FAERS Safety Report 16864153 (Version 1)
Quarter: 2019Q3

REPORT INFORMATION
  Report Type: Spontaneous
  Country: US (occurrence: US)
  Receive Date: 20190927
  Receipt Date: 20190927
  Transmission Date: 20191005
  Serious: No
  Sender: FDA-Public Use
  Company Number: US-TEVA-2019-US-1113806

PATIENT
  Sex: Female

DRUGS (3)
  1. DIFLUNISAL TABLETS [Suspect]
     Active Substance: DIFLUNISAL
     Indication: MUSCULOSKELETAL PAIN
  2. BENADRYL [Suspect]
     Active Substance: DIPHENHYDRAMINE HYDROCHLORIDE
     Route: 065
     Dates: start: 2019
  3. DIFLUNISAL TABLETS [Suspect]
     Active Substance: DIFLUNISAL
     Indication: NECK PAIN
     Route: 065
     Dates: start: 20190918, end: 20190918

REACTIONS (5)
  - Erythema [Recovered/Resolved]
  - Somnolence [Recovered/Resolved]
  - Swelling of eyelid [Recovered/Resolved]
  - Nasal pruritus [Recovered/Resolved]
  - Swelling face [Recovered/Resolved]

NARRATIVE: CASE EVENT DATE: 20190918
